FAERS Safety Report 10583234 (Version 2)
Quarter: 2015Q2

REPORT INFORMATION
  Report Type: Spontaneous
  Country: US (occurrence: US)
  Receive Date: 20141114
  Receipt Date: 20150630
  Transmission Date: 20150821
  Serious: Yes (Hospitalization)
  Sender: FDA-Public Use
  Company Number: US-GLAXOSMITHKLINE-US2014GSK021285

PATIENT
  Sex: Female

DRUGS (1)
  1. ADVAIR DISKUS [Suspect]
     Active Substance: FLUTICASONE PROPIONATE\SALMETEROL XINAFOATE
     Indication: ASTHMA
     Dosage: 500 UNK, UNK
     Route: 055
     Dates: start: 201103

REACTIONS (5)
  - Malaise [Unknown]
  - Chest discomfort [Unknown]
  - Asthma [Unknown]
  - Cough [Unknown]
  - Drug dose omission [Unknown]
